FAERS Safety Report 6071234-8 (Version None)
Quarter: 2009Q1

REPORT INFORMATION
  Report Type: 
  Country: None (occurrence: None)
  Receive Date: 20090209
  Receipt Date: 20090130
  Transmission Date: 20090719
  Serious: Yes (Other)
  Sender: FDA-Public Use
  Company Number: US-ELI_LILLY_AND_COMPANY-US200901005573

PATIENT
  Sex: Female

DRUGS (2)
  1. FORTEO [Suspect]
     Indication: OSTEOPOROSIS
     Dates: start: 20070829
  2. FORTEO [Suspect]
     Dates: start: 20090114

REACTIONS (4)
  - COLON OPERATION [None]
  - DIVERTICULITIS [None]
  - MUSCLE SPASMS [None]
  - WHITE BLOOD CELL COUNT INCREASED [None]
